FAERS Safety Report 8403460-4 (Version None)
Quarter: 2012Q2

REPORT INFORMATION
  Report Type: 
  Country: None (occurrence: None)
  Receive Date: 20120601
  Receipt Date: 20060830
  Transmission Date: 20120825
  Serious: Yes (Hospitalization)
  Sender: FDA-Public Use
  Company Number: JP-BRISTOL-MYERS SQUIBB COMPANY-13516091

PATIENT
  Sex: Female

DRUGS (2)
  1. ABILIFY [Suspect]
     Indication: SCHIZOPHRENIA
     Dosage: INCREASED TO 12MG. ALSO FROM AUG-SEP06
     Route: 048
     Dates: end: 20060901
  2. ZYPREXA [Concomitant]
     Dosage: DECREASED TO 10MG
     Dates: start: 20060101

REACTIONS (3)
  - DELUSION [None]
  - INSOMNIA [None]
  - HALLUCINATION [None]
